FAERS Safety Report 10378732 (Version 1)
Quarter: 2014Q3

REPORT INFORMATION
  Report Type: Spontaneous
  Country: US (occurrence: US)
  Receive Date: 20140812
  Receipt Date: 20140812
  Transmission Date: 20150326
  Serious: No
  Sender: FDA-Public Use
  Company Number: US-FRI-1000069624

PATIENT
  Age: 85 Year
  Sex: Male

DRUGS (7)
  1. NAMENDA XR [Suspect]
     Active Substance: MEMANTINE HYDROCHLORIDE
     Indication: DEMENTIA ALZHEIMER^S TYPE
     Dosage: 7 MG
     Route: 048
     Dates: start: 20140501, end: 20140507
  2. EXELON PATCH [Concomitant]
     Active Substance: RIVASTIGMINE
     Route: 062
  3. NAMENDA XR [Suspect]
     Active Substance: MEMANTINE HYDROCHLORIDE
     Indication: DEMENTIA ALZHEIMER^S TYPE
     Dosage: 21 MG
     Route: 048
     Dates: start: 20140618, end: 2014
  4. NAMENDA XR [Suspect]
     Active Substance: MEMANTINE HYDROCHLORIDE
     Indication: DEMENTIA ALZHEIMER^S TYPE
     Dosage: 28 MG
     Route: 048
     Dates: start: 20140522, end: 20140617
  5. NAMENDA XR [Suspect]
     Active Substance: MEMANTINE HYDROCHLORIDE
     Dosage: 14 MG
     Route: 048
     Dates: start: 20140508, end: 20140514
  6. NAMENDA XR [Suspect]
     Active Substance: MEMANTINE HYDROCHLORIDE
     Dosage: 21 MG
     Route: 048
     Dates: start: 20140515, end: 20140521
  7. NAMENDA [Suspect]
     Active Substance: MEMANTINE HYDROCHLORIDE
     Indication: DEMENTIA ALZHEIMER^S TYPE
     Dosage: 20 MG
     Route: 048
     Dates: start: 2014

REACTIONS (5)
  - Mental impairment [Recovered/Resolved]
  - Personality change [Not Recovered/Not Resolved]
  - Depression [Recovered/Resolved]
  - Depressed level of consciousness [Not Recovered/Not Resolved]
  - Agitation [Recovered/Resolved]

NARRATIVE: CASE EVENT DATE: 2014
